FAERS Safety Report 4861234-5 (Version None)
Quarter: 2005Q4

REPORT INFORMATION
  Report Type: 
  Country: None (occurrence: None)
  Receive Date: 20051220
  Receipt Date: 20051208
  Transmission Date: 20060501
  Serious: Yes (Death, Other)
  Sender: FDA-Public Use
  Company Number: CA-BRISTOL-MYERS SQUIBB COMPANY-13209697

PATIENT
  Age: 47 Year
  Sex: Female

DRUGS (12)
  1. CISPLATIN [Suspect]
     Indication: BLADDER NEOPLASM
     Route: 042
     Dates: start: 20050908, end: 20051006
  2. PACLITAXEL [Suspect]
  3. GEMCITABINE [Suspect]
     Indication: BLADDER NEOPLASM
     Route: 042
     Dates: start: 20050908, end: 20051006
  4. DEXAMETHASONE [Concomitant]
     Route: 042
     Dates: start: 20050908
  5. DEXAMETHASONE [Concomitant]
     Route: 048
     Dates: start: 20051006
  6. ONDANSETRON [Concomitant]
     Route: 042
     Dates: start: 20050908
  7. ONDANSETRON [Concomitant]
     Route: 048
     Dates: start: 20051006
  8. OMEPRAZOLE [Concomitant]
     Route: 048
     Dates: start: 20050908
  9. PROCHLORPERAZINE [Concomitant]
     Route: 048
     Dates: start: 20050908
  10. LORAZEPAM [Concomitant]
  11. MANNITOL [Concomitant]
     Route: 042
  12. FUROSEMIDE [Concomitant]
     Route: 042

REACTIONS (8)
  - ASTHENIA [None]
  - CARDIAC ARREST [None]
  - GASTRITIS [None]
  - MALAISE [None]
  - NEUTROPENIA [None]
  - PLATELET COUNT DECREASED [None]
  - PYREXIA [None]
  - VOMITING [None]
